FAERS Safety Report 25011602 (Version 8)
Quarter: 2025Q2

REPORT INFORMATION
  Report Type: Spontaneous
  Country: US (occurrence: US)
  Receive Date: 20250226
  Receipt Date: 20250523
  Transmission Date: 20250717
  Serious: No
  Sender: BIOGEN
  Company Number: US-BIOGEN-2020BI00847955

PATIENT
  Sex: Female

DRUGS (38)
  1. AVONEX [Suspect]
     Active Substance: INTERFERON BETA-1A
     Indication: Multiple sclerosis
     Dosage: INJECT 30 MCG INTRAMUSCULARLY ONCE WEEKLY
     Route: 050
     Dates: start: 201703
  2. AVONEX [Suspect]
     Active Substance: INTERFERON BETA-1A
     Route: 050
     Dates: start: 20020101, end: 20140327
  3. AVONEX [Suspect]
     Active Substance: INTERFERON BETA-1A
  4. AVONEX [Suspect]
     Active Substance: INTERFERON BETA-1A
  5. AVONEX [Suspect]
     Active Substance: INTERFERON BETA-1A
  6. AVONEX [Suspect]
     Active Substance: INTERFERON BETA-1A
  7. AVONEX [Suspect]
     Active Substance: INTERFERON BETA-1A
  8. AVONEX [Suspect]
     Active Substance: INTERFERON BETA-1A
  9. AVONEX [Suspect]
     Active Substance: INTERFERON BETA-1A
  10. AVONEX [Suspect]
     Active Substance: INTERFERON BETA-1A
  11. AVONEX [Suspect]
     Active Substance: INTERFERON BETA-1A
  12. AVONEX [Suspect]
     Active Substance: INTERFERON BETA-1A
  13. AVONEX [Suspect]
     Active Substance: INTERFERON BETA-1A
  14. AVONEX [Suspect]
     Active Substance: INTERFERON BETA-1A
     Indication: Multiple sclerosis
     Route: 050
     Dates: start: 20250422
  15. AVONEX [Suspect]
     Active Substance: INTERFERON BETA-1A
  16. AVONEX [Suspect]
     Active Substance: INTERFERON BETA-1A
  17. AVONEX [Suspect]
     Active Substance: INTERFERON BETA-1A
  18. VENLAFAXINE HCL [Concomitant]
     Active Substance: VENLAFAXINE HYDROCHLORIDE
     Route: 050
  19. QUETIAPINE FUMARATE [Concomitant]
     Active Substance: QUETIAPINE FUMARATE
     Route: 050
  20. VITAMIN B12 [Concomitant]
     Active Substance: CYANOCOBALAMIN
     Route: 050
  21. BEE POLLEN [Concomitant]
     Active Substance: BEE POLLEN
     Route: 050
  22. CALCIUM 600/MAGNESIUM 300 [Concomitant]
     Route: 050
  23. LORATADINE [Concomitant]
     Active Substance: LORATADINE
     Route: 050
  24. ATORVASTATIN CALCIUM [Concomitant]
     Active Substance: ATORVASTATIN CALCIUM
     Route: 050
  25. ATORVASTATIN SODIUM [Concomitant]
     Active Substance: ATORVASTATIN SODIUM
     Route: 050
  26. GABAPENTIN [Concomitant]
     Active Substance: GABAPENTIN
     Route: 050
  27. CELEXA [Concomitant]
     Active Substance: CITALOPRAM HYDROBROMIDE
     Route: 050
  28. CLONAZEPAM [Concomitant]
     Active Substance: CLONAZEPAM
     Route: 050
  29. TEMAZEPAM [Concomitant]
     Active Substance: TEMAZEPAM
     Route: 050
  30. FISH OIL [Concomitant]
     Active Substance: FISH OIL
     Route: 050
  31. MELATONIN [Concomitant]
     Active Substance: MELATONIN
     Route: 050
  32. GLUCOSAMINE [Concomitant]
     Active Substance: GLUCOSAMINE
     Route: 050
  33. BUPROPION [Concomitant]
     Active Substance: BUPROPION
     Route: 050
  34. BUSPIRONE [Concomitant]
     Active Substance: BUSPIRONE HYDROCHLORIDE
     Route: 050
  35. METFORMIN [Concomitant]
     Active Substance: METFORMIN HYDROCHLORIDE
     Route: 050
  36. VICTOZA [Concomitant]
     Active Substance: LIRAGLUTIDE
     Route: 050
  37. ALENDRONATE [Concomitant]
     Active Substance: ALENDRONATE SODIUM
     Route: 050
  38. NAPROXEN [Concomitant]
     Active Substance: NAPROXEN
     Route: 050

REACTIONS (24)
  - Drug ineffective [Not Recovered/Not Resolved]
  - Product dose omission issue [Not Recovered/Not Resolved]
  - Hangover [Unknown]
  - Feeling abnormal [Unknown]
  - Diarrhoea [Unknown]
  - General physical health deterioration [Unknown]
  - Insomnia [Unknown]
  - Memory impairment [Unknown]
  - Balance disorder [Unknown]
  - Feeling cold [Unknown]
  - Anxiety [Unknown]
  - Logorrhoea [Unknown]
  - Joint injury [Unknown]
  - Multiple sclerosis relapse [Unknown]
  - Fall [Recovered/Resolved]
  - Headache [Not Recovered/Not Resolved]
  - Fatigue [Unknown]
  - Depression [Unknown]
  - Influenza like illness [Unknown]
  - Joint stiffness [Unknown]
  - Paraesthesia [Unknown]
  - Hypersensitivity [Unknown]
  - Tension headache [Unknown]
  - Malaise [Unknown]
